FAERS Safety Report 10375799 (Version 3)
Quarter: 2014Q4

REPORT INFORMATION
  Report Type: Other
  Country: US (occurrence: US)
  Receive Date: 20140811
  Receipt Date: 20141003
  Transmission Date: 20150528
  Serious: Yes (Other)
  Sender: FDA-Public Use
  Company Number: US-ACORDA-ACO_105334_2014

PATIENT
  Age: 46 Year
  Sex: Female

DRUGS (14)
  1. AMPYRA [Suspect]
     Active Substance: DALFAMPRIDINE
     Indication: GAIT DISTURBANCE
     Dosage: 10 MG, BID
     Route: 048
     Dates: start: 20130523, end: 20140911
  2. VITAMIN B12 [Concomitant]
     Active Substance: CYANOCOBALAMIN
     Indication: PRODUCT USED FOR UNKNOWN INDICATION
     Dosage: UNK
  3. TOLTERODINE [Concomitant]
     Active Substance: TOLTERODINE
     Indication: HYPERTONIC BLADDER
     Dosage: 4 MG, QD
     Route: 048
  4. RITUXIMAB [Concomitant]
     Active Substance: RITUXIMAB
     Indication: RHEUMATOID ARTHRITIS
     Dosage: 1 G, YEARLY (DIVIDED OVER 2 DOSES OVER 2 WEEKS)
     Route: 042
     Dates: start: 20140221
  5. RITUXIMAB [Concomitant]
     Active Substance: RITUXIMAB
     Dosage: 1 G, YEARLY (DIVIDED OVER 2 DOSES OVER 2 WEEKS)1 G, UNK
     Route: 042
     Dates: start: 20120702
  6. RITUXIMAB [Concomitant]
     Active Substance: RITUXIMAB
     Indication: MULTIPLE SCLEROSIS
     Dosage: 1 G, YEARLY (DIVIDED OVER 2 DOSES OVER 2 WEEKS)
     Route: 042
     Dates: start: 20140307
  7. RITUXIMAB [Concomitant]
     Active Substance: RITUXIMAB
     Dosage: 1 G, YEARLY (DIVIDED OVER 2 DOSES OVER 2 WEEKS)
     Route: 042
     Dates: start: 20130214
  8. MULTIVITAMINS WITH IRON [Concomitant]
     Active Substance: IRON\VITAMINS
     Indication: PRODUCT USED FOR UNKNOWN INDICATION
     Dosage: UNK
  9. METHOTREXATE SODIUM. [Concomitant]
     Active Substance: METHOTREXATE SODIUM
     Indication: RHEUMATOID ARTHRITIS
     Dosage: 2.5 MG, 4 TABS WEEKLY
     Route: 048
  10. FOLIC ACID. [Concomitant]
     Active Substance: FOLIC ACID
     Indication: RHEUMATOID ARTHRITIS
     Dosage: 1 MG, QD
     Route: 048
  11. RITUXIMAB [Concomitant]
     Active Substance: RITUXIMAB
     Dosage: 1 G, YEARLY (DIVIDED OVER 2 DOSES OVER 2 WEEKS)1 G, UNK
     Route: 042
     Dates: start: 20120618
  12. OMEGA 3 [Concomitant]
     Active Substance: OMEGA-3 FATTY ACIDS
     Indication: PRODUCT USED FOR UNKNOWN INDICATION
     Dosage: UNK
  13. MAGNESIUM SULFATE. [Concomitant]
     Active Substance: MAGNESIUM SULFATE
     Indication: PRODUCT USED FOR UNKNOWN INDICATION
     Dosage: UNK
  14. RITUXIMAB [Concomitant]
     Active Substance: RITUXIMAB
     Dosage: 1 G, YEARLY (DIVIDED OVER 2 DOSES OVER 2 WEEKS)1 G, UNK
     Route: 042
     Dates: start: 20120131

REACTIONS (7)
  - Seizure [Recovered/Resolved]
  - Drug dose omission [Unknown]
  - Seizure [Recovered/Resolved]
  - Migraine [Recovered/Resolved]
  - Hypoglycaemia [Recovered/Resolved]
  - Central nervous system lesion [Unknown]
  - Adverse event [Unknown]

NARRATIVE: CASE EVENT DATE: 20131025
